FAERS Safety Report 22848187 (Version 4)
Quarter: 2024Q2

REPORT INFORMATION
  Report Type: Spontaneous
  Country: DE (occurrence: None)
  Receive Date: 20230822
  Receipt Date: 20240501
  Transmission Date: 20240715
  Serious: Yes (Other)
  Sender: FDA-Public Use
  Company Number: DE-ROCHE-3332160

PATIENT

DRUGS (1)
  1. RITUXIMAB [Suspect]
     Active Substance: RITUXIMAB
     Indication: Multiple sclerosis
     Route: 065

REACTIONS (7)
  - Multiple sclerosis relapse [Unknown]
  - Off label use [Unknown]
  - Incorrect drug administration rate [Unknown]
  - Asthenia [Unknown]
  - COVID-19 [Recovered/Resolved]
  - B-lymphocyte count decreased [Unknown]
  - Influenza [Recovered/Resolved]
